FAERS Safety Report 17036515 (Version 2)
Quarter: 2020Q1

REPORT INFORMATION
  Report Type: Spontaneous
  Country: US (occurrence: US)
  Receive Date: 20191115
  Receipt Date: 20200128
  Transmission Date: 20200409
  Serious: No
  Sender: FDA-Public Use
  Company Number: US-VERTEX PHARMACEUTICALS-2019-011138

PATIENT
  Sex: Male

DRUGS (2)
  1. BETHKIS [Concomitant]
     Active Substance: TOBRAMYCIN
  2. SYMDEKO [Suspect]
     Active Substance: IVACAFTOR\TEZACAFTOR
     Indication: CYSTIC FIBROSIS
     Dosage: 100MG TEZACAFTOR/150 MG IVACAFTOR AM, 150MG IVACAFTOR PM
     Route: 048
     Dates: start: 20180508, end: 201908

REACTIONS (1)
  - Drug ineffective [Unknown]
